FAERS Safety Report 14398384 (Version 2)
Quarter: 2018Q1

REPORT INFORMATION
  Report Type: Report from Study
  Country: RU (occurrence: RU)
  Receive Date: 20180116
  Receipt Date: 20180124
  Transmission Date: 20180509
  Serious: Yes (Other)
  Sender: FDA-Public Use
  Company Number: RU-AMGEN-RUSCT2017168751

PATIENT
  Age: 12 Year
  Sex: Female
  Weight: 29.2 kg

DRUGS (1)
  1. ROMIPLOSTIM [Suspect]
     Active Substance: ROMIPLOSTIM
     Indication: IMMUNE THROMBOCYTOPENIC PURPURA
     Dosage: 0.53 ML, UNK
     Route: 058
     Dates: start: 20150408, end: 20170322

REACTIONS (1)
  - Neutralising antibodies [Not Recovered/Not Resolved]

NARRATIVE: CASE EVENT DATE: 20170323
